FAERS Safety Report 22611636 (Version 5)
Quarter: 2024Q1

REPORT INFORMATION
  Report Type: Spontaneous
  Country: US (occurrence: US)
  Receive Date: 20230616
  Receipt Date: 20240325
  Transmission Date: 20240410
  Serious: Yes (Disabling, Other)
  Sender: FDA-Public Use
  Company Number: US-HORIZON THERAPEUTICS-HZN-2023-004527

PATIENT

DRUGS (15)
  1. TEPEZZA [Suspect]
     Active Substance: TEPROTUMUMAB-TRBW
     Indication: Endocrine ophthalmopathy
     Dosage: FIRST INFUSION
     Route: 042
     Dates: start: 20210831
  2. TEPEZZA [Suspect]
     Active Substance: TEPROTUMUMAB-TRBW
     Dosage: SECOND INFUSION
     Route: 042
     Dates: start: 20210921
  3. TEPEZZA [Suspect]
     Active Substance: TEPROTUMUMAB-TRBW
     Dosage: THIRD INFUSION
     Route: 042
     Dates: start: 20211012
  4. TEPEZZA [Suspect]
     Active Substance: TEPROTUMUMAB-TRBW
     Dosage: FOURTH INFUSION
     Route: 042
     Dates: start: 20211102
  5. TEPEZZA [Suspect]
     Active Substance: TEPROTUMUMAB-TRBW
     Dosage: FIFTH INFUSION
     Route: 042
     Dates: start: 20211123
  6. TEPEZZA [Suspect]
     Active Substance: TEPROTUMUMAB-TRBW
     Dosage: SIXTH INFUSION
     Route: 042
     Dates: start: 20211214
  7. TEPEZZA [Suspect]
     Active Substance: TEPROTUMUMAB-TRBW
     Dosage: SEVENTH INFUSION
     Route: 042
     Dates: start: 20220104
  8. TEPEZZA [Suspect]
     Active Substance: TEPROTUMUMAB-TRBW
     Dosage: LAST INFUSION
     Route: 042
     Dates: start: 20220125
  9. CALCIUM CARBONATE [Concomitant]
     Active Substance: CALCIUM CARBONATE
     Route: 048
  10. HYDROQUINONE [Concomitant]
     Active Substance: HYDROQUINONE
     Dosage: UNK UNK, BID
     Route: 061
  11. IPRATROPIUM [Concomitant]
     Active Substance: IPRATROPIUM
     Dosage: UNK UNK, BID
  12. SYNTHROID [Concomitant]
     Active Substance: LEVOTHYROXINE SODIUM
     Dosage: UNK UNK, QD
     Route: 065
  13. EPINEPHRINE\LIDOCAINE HYDROCHLORIDE [Concomitant]
     Active Substance: EPINEPHRINE\LIDOCAINE HYDROCHLORIDE
     Dosage: UNK UNK, QD
     Route: 065
  14. ZOLEDRONIC ACID [Concomitant]
     Active Substance: ZOLEDRONIC ACID
     Route: 042
  15. SODIUM CHLORIDE [Concomitant]
     Active Substance: SODIUM CHLORIDE
     Dosage: UNK UNK, QD

REACTIONS (18)
  - Deafness permanent [Not Recovered/Not Resolved]
  - Physical disability [Not Recovered/Not Resolved]
  - Disability [Not Recovered/Not Resolved]
  - Product quality issue [Unknown]
  - Anxiety [Not Recovered/Not Resolved]
  - Economic problem [Not Recovered/Not Resolved]
  - Concomitant disease aggravated [Not Recovered/Not Resolved]
  - Pain [Not Recovered/Not Resolved]
  - Injury [Not Recovered/Not Resolved]
  - Emotional distress [Not Recovered/Not Resolved]
  - Impaired quality of life [Not Recovered/Not Resolved]
  - Discomfort [Unknown]
  - Hyperhomocysteinaemia [Unknown]
  - Vitamin B12 deficiency [Unknown]
  - Ageusia [Unknown]
  - Taste disorder [Unknown]
  - Ear discomfort [Unknown]
  - Tinnitus [Not Recovered/Not Resolved]

NARRATIVE: CASE EVENT DATE: 20210824
